FAERS Safety Report 16090494 (Version 1)
Quarter: 2019Q1

REPORT INFORMATION
  Report Type: Spontaneous
  Country: US (occurrence: US)
  Receive Date: 20190319
  Receipt Date: 20190319
  Transmission Date: 20190418
  Serious: No
  Sender: FDA-Public Use
  Company Number: US-PERRIGO-18US008089

PATIENT
  Age: 68 Year
  Sex: Male
  Weight: 86.17 kg

DRUGS (5)
  1. WARFARIN [Concomitant]
     Active Substance: WARFARIN
     Indication: ANTICOAGULANT THERAPY
     Dosage: UNK
     Route: 048
     Dates: start: 2008
  2. NICOTINE POLACRILEX [Suspect]
     Active Substance: NICOTINE
     Dosage: 1/2 LOZENGE, UP TO 8 TIMES DAILY, PRN
     Route: 002
     Dates: start: 201806
  3. LIPID MODIFYING AGENTS [Concomitant]
     Active Substance: UNSPECIFIED INGREDIENT
     Indication: BLOOD CHOLESTEROL INCREASED
     Dosage: UNK
     Route: 048
  4. ANTIHYPERTENSIVES [Concomitant]
     Active Substance: UNSPECIFIED INGREDIENT
     Indication: HYPERTENSION
     Dosage: UNK
     Route: 048
  5. NICOTINE POLACRILEX [Suspect]
     Active Substance: NICOTINE
     Indication: SMOKING CESSATION THERAPY
     Dosage: 4 MG, UP TO 10 TIMES DAILY, PRN
     Route: 002
     Dates: start: 20180205, end: 201806

REACTIONS (2)
  - Wrong technique in product usage process [Not Recovered/Not Resolved]
  - Nicotine dependence [Not Recovered/Not Resolved]

NARRATIVE: CASE EVENT DATE: 201806
